FAERS Safety Report 11398536 (Version 1)
Quarter: 2015Q3

REPORT INFORMATION
  Report Type: Spontaneous
  Country: BR (occurrence: None)
  Receive Date: 20150818
  Receipt Date: 20150818
  Transmission Date: 20151125
  Serious: Yes (Other)
  Sender: FDA-Public Use
  Company Number: BR-TORRENT-00001853-01

PATIENT
  Age: 29 Year
  Sex: Male

DRUGS (3)
  1. BROMAZEPAM [Concomitant]
     Active Substance: BROMAZEPAM
  2. OLEPTAL [Suspect]
     Active Substance: OXCARBAZEPINE
     Indication: BIPOLAR DISORDER
     Route: 048
     Dates: end: 2014
  3. VENLIFT OD (INN:VENLAFAXINE HYDROCHLORIDE) [Suspect]
     Active Substance: VENLAFAXINE HYDROCHLORIDE
     Indication: GENERALISED ANXIETY DISORDER
     Route: 048
     Dates: start: 20150730

REACTIONS (12)
  - Suicidal ideation [None]
  - Tremor [None]
  - Insomnia [None]
  - Off label use [None]
  - Decreased appetite [None]
  - Drug ineffective [None]
  - Irritability [None]
  - Condition aggravated [None]
  - Restlessness [None]
  - Hot flush [None]
  - Skin irritation [None]
  - Weight decreased [None]

NARRATIVE: CASE EVENT DATE: 2014
